FAERS Safety Report 26195741 (Version 1)
Quarter: 2025Q4

REPORT INFORMATION
  Report Type: Spontaneous
  Country: US (occurrence: US)
  Receive Date: 20251224
  Receipt Date: 20251224
  Transmission Date: 20260118
  Serious: Yes (Other)
  Sender: ORION PHARMA
  Company Number: US-MLMSERVICE-20251215-PI751383-00059-1

PATIENT
  Age: 74 Year
  Sex: Female

DRUGS (3)
  1. METHOTREXATE [Suspect]
     Active Substance: METHOTREXATE
     Indication: Immune-mediated myositis
  2. AZATHIOPRINE [Suspect]
     Active Substance: AZATHIOPRINE
     Indication: Immune-mediated myositis
  3. PREDNISONE [Suspect]
     Active Substance: PREDNISONE
     Indication: Immune-mediated myositis

REACTIONS (3)
  - Pneumocystis jirovecii pneumonia [Recovering/Resolving]
  - Pneumothorax [Recovered/Resolved]
  - Product use in unapproved indication [Unknown]
